FAERS Safety Report 5815316-1 (Version None)
Quarter: 2008Q3

REPORT INFORMATION
  Report Type: 
  Country: None (occurrence: None)
  Receive Date: 20080718
  Receipt Date: 20080710
  Transmission Date: 20090109
  Serious: Yes (Other)
  Sender: FDA-Public Use
  Company Number: US-PFIZER INC-2007048863

PATIENT
  Sex: Female

DRUGS (2)
  1. CHANTIX [Suspect]
     Indication: TOBACCO ABUSE
     Route: 048
     Dates: start: 20070201, end: 20070201
  2. ERYTHROMYCIN [Suspect]

REACTIONS (4)
  - ARTHRALGIA [None]
  - HYPERSENSITIVITY [None]
  - JOINT RANGE OF MOTION DECREASED [None]
  - URTICARIA [None]
